FAERS Safety Report 10492636 (Version 2)
Quarter: 2014Q4

REPORT INFORMATION
  Report Type: Spontaneous
  Country: US (occurrence: US)
  Receive Date: 20141002
  Receipt Date: 20141211
  Transmission Date: 20150528
  Serious: Yes (Other)
  Sender: FDA-Public Use
  Company Number: US-GLAXOSMITHKLINE-A1073473A

PATIENT
  Age: 63 Year
  Sex: Female

DRUGS (3)
  1. VENTOLIN HFA [Suspect]
     Active Substance: ALBUTEROL SULFATE
     Indication: PRODUCT USED FOR UNKNOWN INDICATION
  2. VERAMYST [Suspect]
     Active Substance: FLUTICASONE FUROATE
     Indication: SINUS DISORDER
     Dosage: UNK
     Dates: start: 201310
  3. ADVAIR DISKUS [Suspect]
     Active Substance: FLUTICASONE PROPIONATE\SALMETEROL XINAFOATE
     Indication: ASTHMA
     Dosage: 1 PUFF(S), BID
     Route: 055
     Dates: start: 201305

REACTIONS (4)
  - Wheezing [Recovering/Resolving]
  - Sinus operation [Recovered/Resolved]
  - Dyspnoea [Unknown]
  - Drug administration error [Unknown]

NARRATIVE: CASE EVENT DATE: 20140512
